FAERS Safety Report 4682886-9 (Version None)
Quarter: 2005Q2

REPORT INFORMATION
  Report Type: 
  Country: None (occurrence: None)
  Receive Date: 20050602
  Receipt Date: 20050126
  Transmission Date: 20051028
  Serious: No
  Sender: FDA-Public Use
  Company Number: US_0502112101

PATIENT
  Sex: Female
  Weight: 55 kg

DRUGS (9)
  1. CYMBALTA [Suspect]
     Indication: FIBROMYALGIA
     Dosage: 60 MG
     Dates: start: 20041101
  2. NORTRIPTYLINE HCL [Concomitant]
  3. PREDNISONE [Concomitant]
  4. NEURONTIN (GABAPENTIN PFIZER) [Concomitant]
  5. PULMICORT [Concomitant]
  6. RESTASIS (CICLOSPORIN) [Concomitant]
  7. NASACORT [Concomitant]
  8. ZELNORM [Concomitant]
  9. AMBIEN [Concomitant]

REACTIONS (10)
  - ASTHENIA [None]
  - BLOOD POTASSIUM DECREASED [None]
  - DECREASED APPETITE [None]
  - DRUG INTERACTION [None]
  - FATIGUE [None]
  - FEELING ABNORMAL [None]
  - INFLUENZA [None]
  - MUSCLE SPASMS [None]
  - SLEEP DISORDER [None]
  - WEIGHT DECREASED [None]
